FAERS Safety Report 8966167 (Version 1)
Quarter: 2012Q4

REPORT INFORMATION
  Report Type: 
  Country: US (occurrence: US)
  Receive Date: 20121214
  Receipt Date: 20121214
  Transmission Date: 20130627
  Serious: Yes (Hospitalization, Other)
  Sender: FDA-Public Use
  Company Number: US-ALEXION-A201202374

PATIENT
  Sex: Female

DRUGS (2)
  1. SOLIRIS 300MG [Suspect]
     Dosage: UNK
     Route: 042
  2. ANTIBIOTICS [Concomitant]
     Indication: PROPHYLAXIS

REACTIONS (2)
  - Confusional state [Unknown]
  - Platelet count decreased [Unknown]
